FAERS Safety Report 24187571 (Version 1)
Quarter: 2024Q3

REPORT INFORMATION
  Report Type: Spontaneous
  Country: CN (occurrence: CN)
  Receive Date: 20240808
  Receipt Date: 20240808
  Transmission Date: 20241017
  Serious: Yes (Hospitalization, Other)
  Sender: RANBAXY
  Company Number: CN-SUN PHARMACEUTICAL INDUSTRIES LTD-2024R1-460944

PATIENT
  Age: 52 Year
  Sex: Male

DRUGS (4)
  1. CARBOPLATIN [Suspect]
     Active Substance: CARBOPLATIN
     Indication: Chemotherapy
     Dosage: 400 MILLIGRAM D1
     Route: 041
     Dates: start: 20220506
  2. PACLITAXEL [Suspect]
     Active Substance: PACLITAXEL
     Indication: Chemotherapy
     Dosage: 400 MILLIGRAM
     Route: 041
     Dates: start: 20220506
  3. BEVACIZUMAB [Suspect]
     Active Substance: BEVACIZUMAB
     Indication: Chemotherapy
     Dosage: 900 MILLIGRAM D1
     Route: 041
     Dates: start: 20220506
  4. SINTILIMAB [Suspect]
     Active Substance: SINTILIMAB
     Indication: Chemotherapy
     Dosage: 200 MILLIGRAM D1
     Route: 041
     Dates: start: 20220506

REACTIONS (3)
  - Bone cancer metastatic [Unknown]
  - Gastrointestinal toxicity [Unknown]
  - Neurotoxicity [Unknown]
